FAERS Safety Report 7982286-X (Version None)
Quarter: 2011Q4

REPORT INFORMATION
  Report Type: 
  Country: None (occurrence: None)
  Receive Date: 20111214
  Receipt Date: 20111214
  Transmission Date: 20120403
  Serious: Yes (Hospitalization)
  Sender: FDA-Public Use
  Company Number: None

PATIENT
  Sex: Female
  Weight: 44.9 kg

DRUGS (25)
  1. FLORICET [Concomitant]
  2. GLYBERIN [Concomitant]
  3. REGLAN [Concomitant]
  4. ATENOLOL [Concomitant]
  5. GABAPENTIN [Concomitant]
  6. LANSOPRAZOLE [Concomitant]
  7. NORTRIPTYLINE HCL [Concomitant]
  8. OXYCONTIN [Concomitant]
  9. TOPAMAX [Concomitant]
  10. AMBIEN [Concomitant]
  11. LASIX [Concomitant]
  12. OMEGA 3 FATTY ACIDS [Concomitant]
  13. SENNA [Concomitant]
  14. CALCIUM D [Concomitant]
  15. POTASSIUM CHLORIDE [Concomitant]
  16. COLACE [Concomitant]
  17. MAGNESIUM HYDROXIDE TAB [Concomitant]
  18. NORVASC [Concomitant]
  19. OXYCODONE HCL [Concomitant]
  20. TIVOZANIB [Suspect]
     Indication: COLORECTAL CANCER
     Dosage: 1 MG PO QD
     Route: 048
     Dates: start: 20110419, end: 20111205
  21. LORAZEPAM [Concomitant]
  22. EVEROLIMUS [Suspect]
     Indication: COLORECTAL CANCER
     Dosage: 10 MG PO QD
     Route: 048
     Dates: start: 20110419, end: 20111205
  23. BENADRYL [Concomitant]
  24. BIOTENE [Concomitant]
  25. LACTULOSE [Concomitant]

REACTIONS (2)
  - LARGE INTESTINE ANASTOMOSIS [None]
  - CONSTIPATION [None]
